FAERS Safety Report 9950010 (Version 1)
Quarter: 2014Q1

REPORT INFORMATION
  Report Type: Report from Study
  Country: US (occurrence: US)
  Receive Date: 20140304
  Receipt Date: 20140304
  Transmission Date: 20141002
  Serious: No
  Sender: FDA-Public Use
  Company Number: US-ABBVIE-13P-163-1066852-00

PATIENT
  Age: 45 Year
  Sex: Female

DRUGS (8)
  1. HUMIRA [Suspect]
     Indication: PSORIASIS
     Dosage: LOADING DOSE
     Dates: start: 20130319, end: 20130319
  2. HUMIRA [Suspect]
  3. CELEXA [Concomitant]
     Indication: ANXIETY
  4. KLONOPIN [Concomitant]
     Indication: RESTLESS LEGS SYNDROME
  5. SEROQUEL [Concomitant]
     Indication: INSOMNIA
  6. SEROQUEL [Concomitant]
     Indication: DEPRESSION
  7. PRILOSEC [Concomitant]
     Indication: GASTROOESOPHAGEAL REFLUX DISEASE
  8. BUSPIRONE [Concomitant]
     Indication: DEPRESSION

REACTIONS (1)
  - Injection site pain [Recovered/Resolved]
